FAERS Safety Report 26148037 (Version 1)
Quarter: 2025Q4

REPORT INFORMATION
  Report Type: Spontaneous
  Country: US (occurrence: US)
  Receive Date: 20251212
  Receipt Date: 20251212
  Transmission Date: 20260118
  Serious: No
  Sender: TEVA
  Company Number: US-TEVA-VS-3399472

PATIENT
  Age: 61 Year
  Sex: Male

DRUGS (1)
  1. CROMOLYN SODIUM [Suspect]
     Active Substance: CROMOLYN SODIUM
     Indication: Asthma
     Dosage: INHALATION NEBULES SOLUTION, 20/2MG/ML,  USING SINCE MANY YERARS
     Route: 065

REACTIONS (5)
  - Swollen tongue [Unknown]
  - Hypersensitivity [Unknown]
  - Dyspnoea [Not Recovered/Not Resolved]
  - Product odour abnormal [Unknown]
  - Product taste abnormal [Unknown]

NARRATIVE: CASE EVENT DATE: 20250101
